FAERS Safety Report 22079184 (Version 2)
Quarter: 2023Q2

REPORT INFORMATION
  Report Type: Spontaneous
  Country: AU (occurrence: AU)
  Receive Date: 20230309
  Receipt Date: 20230411
  Transmission Date: 20230721
  Serious: Yes (Other)
  Sender: FDA-Public Use
  Company Number: AU-BAYER-2023A029301

PATIENT

DRUGS (3)
  1. EYLEA [Suspect]
     Active Substance: AFLIBERCEPT
     Indication: Choroidal neovascularisation
     Dosage: UNK; SOLUTION FOR INJECTION; 40 MG/ML
     Dates: start: 20191219, end: 20191219
  2. EYLEA [Suspect]
     Active Substance: AFLIBERCEPT
     Dosage: UNK; SOLUTION FOR INJECTION; 40 MG/ML
     Dates: start: 20230123, end: 20230123
  3. UNSPECIFIED INGREDIENT [Concomitant]
     Active Substance: UNSPECIFIED INGREDIENT
     Indication: Product used for unknown indication

REACTIONS (4)
  - Arrhythmia [Unknown]
  - Transient ischaemic attack [Unknown]
  - Hypertension [Unknown]
  - Speech disorder [Unknown]

NARRATIVE: CASE EVENT DATE: 20230123
